FAERS Safety Report 7399074-8 (Version None)
Quarter: 2011Q2

REPORT INFORMATION
  Report Type: 
  Country: None (occurrence: None)
  Receive Date: 20110407
  Receipt Date: 20110405
  Transmission Date: 20111010
  Serious: Yes (Death, Other)
  Sender: FDA-Public Use
  Company Number: US-AMGEN-USASP2011013541

PATIENT
  Sex: Male

DRUGS (2)
  1. NPLATE [Suspect]
     Dates: end: 20101014
  2. NPLATE [Suspect]
     Indication: IDIOPATHIC THROMBOCYTOPENIC PURPURA
     Dosage: 2 A?G/KG, UNK
     Dates: end: 20101014

REACTIONS (3)
  - BACTERIAL SEPSIS [None]
  - DRUG INEFFECTIVE [None]
  - MULTIPLE MYELOMA [None]
